FAERS Safety Report 19314601 (Version 2)
Quarter: 2021Q2

REPORT INFORMATION
  Report Type: Spontaneous
  Country: JP (occurrence: JP)
  Receive Date: 20210527
  Receipt Date: 20210609
  Transmission Date: 20210717
  Serious: Yes (Other)
  Sender: FDA-Public Use
  Company Number: JP-JNJFOC-20210513514

PATIENT
  Age: 46 Year
  Sex: Male

DRUGS (4)
  1. TREMFYA [Suspect]
     Active Substance: GUSELKUMAB
  2. DOVONEX [Concomitant]
     Active Substance: CALCIPOTRIENE
     Indication: PSORIASIS
     Route: 065
     Dates: start: 20200324, end: 20200501
  3. TREMFYA [Suspect]
     Active Substance: GUSELKUMAB
     Indication: PSORIASIS
     Dosage: DOSE UNKNOWN
     Route: 058
     Dates: start: 20190409, end: 20200324
  4. TREMFYA [Suspect]
     Active Substance: GUSELKUMAB

REACTIONS (1)
  - Cholecystitis [Recovering/Resolving]

NARRATIVE: CASE EVENT DATE: 202004
